FAERS Safety Report 6743882-0 (Version None)
Quarter: 2010Q2

REPORT INFORMATION
  Report Type: 
  Country: None (occurrence: None)
  Receive Date: 20100527
  Receipt Date: 20100412
  Transmission Date: 20101027
  Serious: No
  Sender: FDA-Public Use
  Company Number: US-KINGPHARMUSA00001-K201000442

PATIENT
  Age: 75 Year
  Sex: Female

DRUGS (8)
  1. FLECTOR [Suspect]
     Indication: PAIN
     Dosage: UNK PATCH, QD
     Route: 061
     Dates: start: 20090101, end: 20090901
  2. FLECTOR [Suspect]
     Dosage: UNK PATCH
     Route: 061
  3. GABAPENTIN [Concomitant]
  4. MORPHINE SULFATE [Concomitant]
  5. OMEPRAZOLE [Concomitant]
  6. PROZAC [Concomitant]
  7. SYNTHROID [Concomitant]
  8. ZETIA [Concomitant]

REACTIONS (1)
  - APPLICATION SITE VESICLES [None]
